FAERS Safety Report 5676128-5 (Version None)
Quarter: 2008Q1

REPORT INFORMATION
  Report Type: 
  Country: None (occurrence: None)
  Receive Date: 20080321
  Receipt Date: 20080312
  Transmission Date: 20080703
  Serious: Yes (Hospitalization)
  Sender: FDA-Public Use
  Company Number: US-BAYER-200712717BWH

PATIENT
  Age: 71 Year
  Sex: Male

DRUGS (3)
  1. NEXAVAR [Suspect]
     Indication: HEPATIC CANCER METASTATIC
     Dosage: TOTAL DAILY DOSE: 800 MG  UNIT DOSE: 200 MG
     Route: 048
     Dates: start: 20070701
  2. UNKNOWN MEDICATION FOR HYPERTENSION [Concomitant]
  3. UNKNOWN MEDICATION FOR DIABETES [Concomitant]

REACTIONS (2)
  - EPISTAXIS [None]
  - HAEMATOCHEZIA [None]
